FAERS Safety Report 20457352 (Version 2)
Quarter: 2022Q2

REPORT INFORMATION
  Report Type: Spontaneous
  Country: DE (occurrence: DE)
  Receive Date: 20220210
  Receipt Date: 20220418
  Transmission Date: 20220721
  Serious: Yes (Hospitalization, Other)
  Sender: FDA-Public Use
  Company Number: DE-002147023-NVSC2022DE024452

PATIENT

DRUGS (4)
  1. RUXOLITINIB [Suspect]
     Active Substance: RUXOLITINIB
     Indication: Polycythaemia vera
     Dosage: 10 MG, BID (10 MG 2X DAILY)
     Route: 048
  2. RUXOLITINIB [Suspect]
     Active Substance: RUXOLITINIB
     Indication: Essential thrombocythaemia
  3. CANDESARTAN [Concomitant]
     Active Substance: CANDESARTAN
     Indication: Hypertension
     Dosage: UNK, QD (STRENGTH: 16)
     Route: 048
  4. BISOPROLOL FUMARATE [Concomitant]
     Active Substance: BISOPROLOL FUMARATE
     Indication: Product used for unknown indication
     Dosage: UNK, BID
     Route: 048

REACTIONS (6)
  - Cerebrovascular disorder [Recovering/Resolving]
  - Haemoglobin decreased [Recovering/Resolving]
  - Product use in unapproved indication [Unknown]
  - Cerebral infarction [Unknown]
  - Cerebrovascular accident [Unknown]
  - Platelet count increased [Recovering/Resolving]
